FAERS Safety Report 18226367 (Version 1)
Quarter: 2020Q3

REPORT INFORMATION
  Report Type: Spontaneous
  Country: US (occurrence: US)
  Receive Date: 20200902
  Receipt Date: 20200902
  Transmission Date: 20201103
  Serious: Yes (Hospitalization)
  Sender: FDA-Public Use
  Company Number: None

PATIENT
  Sex: Female

DRUGS (22)
  1. CYCLOPHSPHAMIDE 50MG CAP [Suspect]
     Active Substance: CYCLOPHOSPHAMIDE
     Indication: OVARIAN CANCER
     Route: 048
     Dates: start: 20200509
  2. AMOX/K CLAV [Concomitant]
     Active Substance: AMOXICILLIN\CLAVULANATE POTASSIUM
  3. ESCITALOPRAM [Concomitant]
     Active Substance: ESCITALOPRAM OXALATE
  4. POLYETH GLYC [Concomitant]
     Active Substance: POLYETHYLENE GLYCOLS
  5. OXYBUTYNIN. [Concomitant]
     Active Substance: OXYBUTYNIN CHLORIDE
  6. AMLODIPINE [Concomitant]
     Active Substance: AMLODIPINE BESYLATE
  7. M?ACID GAS CHW [Concomitant]
  8. METOCLOPRAM [Concomitant]
     Active Substance: METOCLOPRAMIDE
  9. NARCAN [Concomitant]
     Active Substance: NALOXONE HYDROCHLORIDE
  10. PANTOPRAZOLE [Concomitant]
     Active Substance: PANTOPRAZOLE
  11. OXYCODONE [Concomitant]
     Active Substance: OXYCODONE
  12. SENNA PLUS [Concomitant]
     Active Substance: DOCUSATE SODIUM\SENNOSIDES\SENNOSIDES A AND B
  13. SUCRALFATE. [Concomitant]
     Active Substance: SUCRALFATE
  14. ATORVASTATIN [Concomitant]
     Active Substance: ATORVASTATIN
  15. IBUPROFEN. [Concomitant]
     Active Substance: IBUPROFEN
  16. ACETAMINOPHEN. [Concomitant]
     Active Substance: ACETAMINOPHEN
  17. CIPROFLOXACN [Concomitant]
     Active Substance: CIPROFLOXACIN
  18. VITAMIN D [Concomitant]
     Active Substance: VITAMIN D NOS
  19. CEFPODOXIME [Concomitant]
     Active Substance: CEFPODOXIME
  20. TINIDAZOLE. [Concomitant]
     Active Substance: TINIDAZOLE
  21. CEFUROXIME. [Concomitant]
     Active Substance: CEFUROXIME
  22. HYDROCO/APAP [Concomitant]
     Active Substance: ACETAMINOPHEN\HYDROCODONE

REACTIONS (1)
  - Hospitalisation [None]
